FAERS Safety Report 6406251-9 (Version None)
Quarter: 2009Q4

REPORT INFORMATION
  Report Type: 
  Country: None (occurrence: None)
  Receive Date: 20091019
  Receipt Date: 20091006
  Transmission Date: 20100525
  Serious: Yes (Other)
  Sender: FDA-Public Use
  Company Number: PHHY2009JP23079

PATIENT
  Sex: Female

DRUGS (7)
  1. GLEEVEC [Suspect]
     Indication: CHRONIC MYELOID LEUKAEMIA
     Dosage: 400 MG/DAY
     Route: 048
     Dates: start: 20090221, end: 20090321
  2. GLEEVEC [Suspect]
     Dosage: 400 MG/DAY
     Route: 048
     Dates: start: 20090416, end: 20090611
  3. ASPIRIN [Concomitant]
     Dosage: UNK
     Route: 048
  4. NORVASC [Concomitant]
     Dosage: UNK
     Route: 048
  5. ALDACTONE [Concomitant]
     Dosage: UNK
     Route: 048
  6. GASTER [Concomitant]
     Route: 048
  7. CELESTAMINE TAB [Concomitant]
     Dosage: 2 DF, UNK
     Route: 048
     Dates: start: 20090501

REACTIONS (8)
  - ABNORMAL BEHAVIOUR [None]
  - AFFECT LABILITY [None]
  - BIPOLAR I DISORDER [None]
  - DELUSION [None]
  - INSOMNIA [None]
  - MENTAL DISORDER [None]
  - PLATELET COUNT DECREASED [None]
  - PRURITUS [None]
